FAERS Safety Report 18038156 (Version 2)
Quarter: 2024Q2

REPORT INFORMATION
  Report Type: Spontaneous
  Country: DK (occurrence: DK)
  Receive Date: 20200717
  Receipt Date: 20240516
  Transmission Date: 20240716
  Serious: Yes (Life-Threatening, Hospitalization, Other)
  Sender: FDA-Public Use
  Company Number: DK-NALPROPION PHARMACEUTICALS INC.-2020-010577

PATIENT
  Age: 72 Year
  Sex: Female
  Weight: 96 kg

DRUGS (15)
  1. BUPROPION HYDROCHLORIDE\NALTREXONE HYDROCHLORIDE [Suspect]
     Active Substance: BUPROPION HYDROCHLORIDE\NALTREXONE HYDROCHLORIDE
     Indication: Weight decreased
     Dosage: STRENGTH: 8MG/90MG, TOOK ONLY ONE TABLET
     Route: 048
     Dates: start: 20200624, end: 20200624
  2. METHADONE HYDROCHLORIDE [Interacting]
     Active Substance: METHADONE HYDROCHLORIDE
     Indication: Pain
     Dosage: STRENGTH: 5 MG
     Route: 048
     Dates: start: 2015
  3. AMITRIPTYLINE [Interacting]
     Active Substance: AMITRIPTYLINE
     Indication: Pain
     Dosage: STRENGTH: 10 MG
     Route: 048
     Dates: start: 2016
  4. SERTRALINE HYDROCHLORIDE [Interacting]
     Active Substance: SERTRALINE HYDROCHLORIDE
     Indication: Mental disorder
     Dosage: STRENGTH: 50 MG
     Route: 048
     Dates: start: 2017
  5. POTASSIUM CHLORIDE [Concomitant]
     Active Substance: POTASSIUM CHLORIDE
     Indication: Mineral supplementation
     Dosage: 4500 MG, QD
     Route: 048
     Dates: start: 2014
  6. PANTOPRAZOLE [Concomitant]
     Active Substance: PANTOPRAZOLE
     Indication: Prophylaxis against gastrointestinal ulcer
     Dosage: 40 MG, QD
     Route: 048
     Dates: start: 2010
  7. LEVOTHYROXINE [Concomitant]
     Active Substance: LEVOTHYROXINE\LEVOTHYROXINE SODIUM
     Indication: Myxoedema
     Dosage: 50 UG, QD
     Route: 048
     Dates: start: 2015
  8. BENDROFLUMETHIAZIDE\POTASSIUM CHLORIDE [Concomitant]
     Active Substance: BENDROFLUMETHIAZIDE\POTASSIUM CHLORIDE
     Indication: Hypertension
     Dosage: 1 DF, QD
     Route: 048
  9. PREDNISOLONE [Concomitant]
     Active Substance: PREDNISOLONE
     Indication: Adrenocortical steroid therapy
     Dosage: 2.5 MG PER DAY OR WHEN NEEDED
     Route: 048
     Dates: start: 2015
  10. PROMETHAZINE [Concomitant]
     Active Substance: PROMETHAZINE HYDROCHLORIDE
     Indication: Insomnia
     Dosage: 25 MG, QD
     Route: 048
     Dates: start: 2018
  11. ACETAMINOPHEN [Concomitant]
     Active Substance: ACETAMINOPHEN
     Indication: Pain
     Dosage: 4000 MG, QD
     Route: 048
     Dates: start: 2018
  12. AMLODIPINE BESYLATE [Concomitant]
     Active Substance: AMLODIPINE BESYLATE
     Indication: Hypertension
     Dosage: 5 MG, QD
     Route: 048
     Dates: start: 2016
  13. BISACODYL [Concomitant]
     Active Substance: BISACODYL
     Indication: Constipation
     Dosage: 5 MG, QD
     Route: 048
     Dates: start: 2016
  14. GABAPENTIN [Concomitant]
     Active Substance: GABAPENTIN
     Indication: Neuralgia
     Dosage: 800 MG, QD
     Route: 048
     Dates: start: 2018
  15. ESTRADIOL HEMIHYDRATE [Concomitant]
     Active Substance: ESTRADIOL HEMIHYDRATE
     Indication: Hormone therapy
     Dosage: 2 MG, QD
     Route: 048
     Dates: start: 2017

REACTIONS (13)
  - Cardiovascular insufficiency [Recovering/Resolving]
  - Serotonin syndrome [Recovering/Resolving]
  - Cyanosis [Recovered/Resolved]
  - Gait disturbance [Unknown]
  - Speech disorder [Unknown]
  - Drug dependence [Recovering/Resolving]
  - Drug interaction [Recovered/Resolved]
  - Seizure [Recovered/Resolved]
  - Heart rate increased [Recovering/Resolving]
  - Blood pressure increased [Recovering/Resolving]
  - Feeling hot [Recovered/Resolved]
  - Memory impairment [Unknown]
  - Product prescribing issue [Unknown]

NARRATIVE: CASE EVENT DATE: 20200601
